FAERS Safety Report 20758004 (Version 5)
Quarter: 2023Q1

REPORT INFORMATION
  Report Type: Report from Study
  Country: US (occurrence: US)
  Receive Date: 20220427
  Receipt Date: 20230315
  Transmission Date: 20230418
  Serious: Yes (Other)
  Sender: FDA-Public Use
  Company Number: US-UCBSA-2022005783

PATIENT
  Age: 70 Year
  Sex: Female
  Weight: 210 kg

DRUGS (5)
  1. CERTOLIZUMAB PEGOL [Suspect]
     Active Substance: CERTOLIZUMAB PEGOL
     Indication: Rheumatoid arthritis
     Dosage: 400 MILLIGRAM, EV 2 WEEKS(QOW)
     Route: 058
     Dates: start: 20220131, end: 2022
  2. CERTOLIZUMAB PEGOL [Suspect]
     Active Substance: CERTOLIZUMAB PEGOL
     Dosage: 400 MILLIGRAM, EV 4 WEEKS
     Route: 058
     Dates: start: 20220131
  3. CERTOLIZUMAB PEGOL [Suspect]
     Active Substance: CERTOLIZUMAB PEGOL
     Dosage: UNK
  4. ISONIAZID [Concomitant]
     Active Substance: ISONIAZID
     Indication: Tuberculosis
     Dosage: 300 MILLIGRAM, ONCE DAILY (QD)
  5. MEDROL [Concomitant]
     Active Substance: METHYLPREDNISOLONE
     Indication: Rash

REACTIONS (11)
  - Tuberculosis [Not Recovered/Not Resolved]
  - Rheumatoid arthritis [Unknown]
  - Rash [Recovering/Resolving]
  - Headache [Recovering/Resolving]
  - Skin discolouration [Unknown]
  - Nasopharyngitis [Not Recovered/Not Resolved]
  - Weight increased [Recovered/Resolved]
  - Product administered at inappropriate site [Unknown]
  - Therapeutic product effect incomplete [Unknown]
  - Therapy cessation [Not Recovered/Not Resolved]
  - Psoriasis [Not Recovered/Not Resolved]

NARRATIVE: CASE EVENT DATE: 20220131
